FAERS Safety Report 11231906 (Version 2)
Quarter: 2015Q3

REPORT INFORMATION
  Report Type: Report from Study
  Country: US (occurrence: US)
  Receive Date: 20150701
  Receipt Date: 20150713
  Transmission Date: 20151125
  Serious: Yes (Death, Hospitalization)
  Sender: FDA-Public Use
  Company Number: US-MYLANLABS-2015M1021627

PATIENT

DRUGS (19)
  1. CRESTOR [Concomitant]
     Active Substance: ROSUVASTATIN CALCIUM
     Indication: HYPERLIPIDAEMIA
     Dosage: UNK, QD
     Route: 048
     Dates: start: 20140116
  2. PEPCID                             /00305201/ [Concomitant]
     Active Substance: ALUMINUM HYDROXIDE\MAGNESIUM CARBONATE
     Indication: ANTACID THERAPY
     Dosage: UNK, BID
     Route: 048
     Dates: start: 20140116
  3. CYTARABINE. [Suspect]
     Active Substance: CYTARABINE
     Indication: ACUTE MYELOID LEUKAEMIA
     Dosage: 44 MG, Q24H FOR 14 DAYS IN NS
     Route: 058
     Dates: start: 20150408, end: 20150421
  4. DACOGEN [Concomitant]
     Active Substance: DECITABINE
     Dosage: ADMINISTERED ON DAY 5
  5. ATIVAN [Concomitant]
     Active Substance: LORAZEPAM
     Indication: VOMITING
  6. NOXAFIL [Concomitant]
     Active Substance: POSACONAZOLE
     Indication: PROPHYLAXIS
     Dosage: UNK, QD
     Route: 048
     Dates: start: 20150412
  7. TRIAMCINOLONE [Concomitant]
     Active Substance: TRIAMCINOLONE
     Indication: RASH
     Dosage: UNK, BID
     Route: 061
     Dates: start: 20140405
  8. FENOFIBRATE. [Concomitant]
     Active Substance: FENOFIBRATE
     Indication: HYPERLIPIDAEMIA
     Dosage: UNK, QD
     Route: 048
     Dates: start: 20140116
  9. KLOR-CON [Concomitant]
     Active Substance: POTASSIUM CHLORIDE
     Indication: MINERAL SUPPLEMENTATION
     Dosage: UNK, BID
     Route: 048
     Dates: start: 20140530
  10. CLOFARABINE [Suspect]
     Active Substance: CLOFARABINE
     Indication: ACUTE MYELOID LEUKAEMIA
     Dosage: 65 MG, IN 250ML NS OVER 1 HOUR Q24H FOR 5 DOSES DAYS 1-5
     Route: 042
     Dates: start: 20150408, end: 20150412
  11. HUMALOG [Concomitant]
     Active Substance: INSULIN LISPRO
     Indication: BLOOD GLUCOSE
     Dosage: PER SLIDING SCALE
     Route: 058
     Dates: start: 20150413
  12. ATIVAN [Concomitant]
     Active Substance: LORAZEPAM
     Indication: NAUSEA
     Dosage: UNK, PRN
     Route: 048
     Dates: start: 20150519
  13. NEURONTIN [Concomitant]
     Active Substance: GABAPENTIN
     Indication: NEURALGIA
     Dosage: UNK, BID
     Route: 048
     Dates: start: 20140409
  14. ACTIGALL [Concomitant]
     Active Substance: URSODIOL
     Indication: PROPHYLAXIS
     Dosage: UNK, BID
     Route: 048
     Dates: start: 20150518
  15. MYLOTARG [Suspect]
     Active Substance: GEMTUZUMAB OZOGAMICIN
     Indication: ACUTE MYELOID LEUKAEMIA RECURRENT
     Dosage: 6.3 MG, UNK
     Route: 042
     Dates: start: 20150518, end: 20150522
  16. LANTUS [Concomitant]
     Active Substance: INSULIN GLARGINE
     Indication: BLOOD GLUCOSE
     Dosage: UNK
     Route: 058
     Dates: start: 201504
  17. ACYCLOVIR                          /00587301/ [Concomitant]
     Active Substance: ACYCLOVIR
     Indication: ANTIVIRAL PROPHYLAXIS
     Dosage: UNK, BID
     Route: 048
     Dates: start: 20150124
  18. CLEOCIN T [Concomitant]
     Active Substance: CLINDAMYCIN PHOSPHATE
     Indication: RASH
     Dosage: UNK, BID
     Route: 061
     Dates: start: 20150208
  19. CIPROFLOXACIN. [Concomitant]
     Active Substance: CIPROFLOXACIN
     Indication: ANTIBIOTIC PROPHYLAXIS
     Dosage: UNK, BID
     Route: 048
     Dates: start: 20150607, end: 20150607

REACTIONS (4)
  - Febrile neutropenia [Fatal]
  - Cardio-respiratory arrest [Fatal]
  - Acute myeloid leukaemia [Fatal]
  - Disease progression [Fatal]

NARRATIVE: CASE EVENT DATE: 20150606
